FAERS Safety Report 8359779-9 (Version None)
Quarter: 2012Q2

REPORT INFORMATION
  Report Type: 
  Country: None (occurrence: None)
  Receive Date: 20120515
  Receipt Date: 20120507
  Transmission Date: 20120825
  Serious: Yes (Hospitalization, Other)
  Sender: FDA-Public Use
  Company Number: PHHY2012FR004728

PATIENT
  Sex: Female

DRUGS (9)
  1. VALSARTAN [Suspect]
     Indication: HYPERTENSION
     Dosage: 1 DF
  2. ESOMEPRAZOLE MAGNESIUM [Concomitant]
     Indication: GASTROOESOPHAGEAL REFLUX DISEASE
     Dosage: 1 DF
  3. ATORVASTATIN [Concomitant]
     Dosage: 1 DF
  4. ESIDRIX [Suspect]
     Indication: HYPERTENSION
     Dosage: 1 DF, DAILY
     Dates: end: 20111220
  5. VALSARTAN [Suspect]
     Dosage: 80 MG DAILY
     Dates: start: 20111223
  6. BISOPROLOL FUMARATE [Suspect]
     Indication: HYPERTENSION
     Dosage: 2 DF, QD
     Dates: start: 20110401, end: 20111221
  7. PENTOXIFYLLINE [Concomitant]
     Dosage: 5 MG, QD
     Dates: start: 20110401
  8. CORDARONE [Concomitant]
     Indication: ARRHYTHMIA
     Dosage: 1 DF
     Dates: start: 20111211, end: 20111219
  9. CORDARONE [Concomitant]
     Dates: start: 20111223

REACTIONS (10)
  - DIZZINESS [None]
  - MALAISE [None]
  - ELECTROCARDIOGRAM ABNORMAL [None]
  - VISION BLURRED [None]
  - BUNDLE BRANCH BLOCK RIGHT [None]
  - ARRHYTHMIA [None]
  - PRESYNCOPE [None]
  - HEADACHE [None]
  - VENTRICULAR EXTRASYSTOLES [None]
  - MIOSIS [None]
